FAERS Safety Report 16595224 (Version 4)
Quarter: 2019Q4

REPORT INFORMATION
  Report Type: Spontaneous
  Country: IT (occurrence: IT)
  Receive Date: 20190718
  Receipt Date: 20191226
  Transmission Date: 20200122
  Serious: Yes (Hospitalization, Other)
  Sender: FDA-Public Use
  Company Number: IT-AUROBINDO-AUR-APL-2019-041433

PATIENT
  Age: 61 Year
  Sex: Female

DRUGS (5)
  1. RITUXIMAB. [Suspect]
     Active Substance: RITUXIMAB
     Indication: CENTRAL NERVOUS SYSTEM LYMPHOMA
     Dosage: 1 DOSAGE FORM (TOTAL)
     Route: 042
     Dates: start: 20190304, end: 20190304
  2. IFOSFAMIDE. [Suspect]
     Active Substance: IFOSFAMIDE
     Indication: LYMPHOMA
     Dosage: 1 DOSAGE FORM (TOTAL)
     Route: 065
     Dates: start: 20190304, end: 20190304
  3. ETOPOSIDE. [Suspect]
     Active Substance: ETOPOSIDE
     Indication: CENTRAL NERVOUS SYSTEM LYMPHOMA
     Dosage: 1 DOSAGE FORM (TOTAL)
     Route: 065
     Dates: start: 20190304, end: 20190304
  4. CEFIXIME. [Suspect]
     Active Substance: CEFIXIME
     Indication: OTITIS MEDIA
     Dosage: 400 MILLIGRAM, DAILY
     Route: 065
     Dates: end: 20190316
  5. CARBOPLATIN. [Suspect]
     Active Substance: CARBOPLATIN
     Indication: CENTRAL NERVOUS SYSTEM LYMPHOMA
     Dosage: 1 DOSAGE FORM (TOTAL)
     Route: 065
     Dates: start: 20190304, end: 20190304

REACTIONS (2)
  - Neutropenia [Recovered/Resolved]
  - Pyrexia [Recovered/Resolved]

NARRATIVE: CASE EVENT DATE: 20190316
